FAERS Safety Report 10136418 (Version 3)
Quarter: 2014Q2

REPORT INFORMATION
  Report Type: Spontaneous
  Country: US (occurrence: None)
  Receive Date: 20140425
  Receipt Date: 20140530
  Transmission Date: 20141212
  Serious: Yes (Other)
  Sender: FDA-Public Use
  Company Number: UTC-047235

PATIENT
  Age: 37 Year
  Sex: Female
  Weight: 129 kg

DRUGS (2)
  1. REMODULIN [Suspect]
     Indication: COR PULMONALE CHRONIC
     Dosage: 191.52 UG/KG (0.133 UG/KG,1 IN 1 MIN),INTRAVENOUS DRIP
     Route: 042
     Dates: start: 20100127
  2. TRACLEER (BOSENTAN) [Concomitant]

REACTIONS (7)
  - Rib fracture [None]
  - Tooth abscess [None]
  - Rotator cuff syndrome [None]
  - Fall [None]
  - Ligament rupture [None]
  - Herpes zoster [None]
  - Musculoskeletal pain [None]
